FAERS Safety Report 7827149-5 (Version None)
Quarter: 2011Q4

REPORT INFORMATION
  Report Type: 
  Country: None (occurrence: None)
  Receive Date: 20111020
  Receipt Date: 20111012
  Transmission Date: 20120403
  Serious: Yes (Hospitalization, Other)
  Sender: FDA-Public Use
  Company Number: US-ELI_LILLY_AND_COMPANY-US201110003106

PATIENT
  Age: 36 Year
  Sex: Male

DRUGS (7)
  1. ALIMTA [Suspect]
     Indication: HEAD AND NECK CANCER
  2. AVASTIN [Concomitant]
     Indication: HEAD AND NECK CANCER
  3. OXYCODONE HCL [Concomitant]
     Indication: PAIN
  4. FENTANYL [Concomitant]
     Indication: PAIN
     Route: 062
  5. FENTANYL [Concomitant]
     Route: 042
  6. MARIJUANA [Concomitant]
  7. ERBITUX [Concomitant]
     Indication: HEAD AND NECK CANCER
     Dosage: UNK

REACTIONS (11)
  - HYPOTENSION [None]
  - SINUS TACHYCARDIA [None]
  - PRODUCTIVE COUGH [None]
  - OFF LABEL USE [None]
  - ASTHENIA [None]
  - PAIN [None]
  - MALAISE [None]
  - SEPSIS [None]
  - DIZZINESS [None]
  - DEHYDRATION [None]
  - CHILLS [None]
